FAERS Safety Report 9556042 (Version 2)
Quarter: 2013Q4

REPORT INFORMATION
  Report Type: Spontaneous
  Country: BG (occurrence: BG)
  Receive Date: 20130926
  Receipt Date: 20131106
  Transmission Date: 20140711
  Serious: Yes (Death, Hospitalization, Other)
  Sender: FDA-Public Use
  Company Number: BG-AMGEN-BGRSP2013066330

PATIENT
  Age: 62 Year
  Sex: Female

DRUGS (1)
  1. NPLATE [Suspect]
     Indication: PRODUCT USED FOR UNKNOWN INDICATION
     Dosage: UNK
     Route: 065
     Dates: start: 20130329

REACTIONS (19)
  - Acute myocardial infarction [Unknown]
  - Chronic lymphocytic leukaemia (in remission) [Unknown]
  - General physical health deterioration [Unknown]
  - Decreased appetite [Unknown]
  - Malaise [Unknown]
  - Asthenia [Unknown]
  - Blood pressure decreased [Unknown]
  - Hiatus hernia [Unknown]
  - Type 2 diabetes mellitus [Unknown]
  - Hepatic steatosis [Unknown]
  - Pyelonephritis acute [Unknown]
  - Chronic respiratory failure [Unknown]
  - Fibroadenoma of breast [Unknown]
  - Circulatory collapse [Fatal]
  - Lymphadenopathy [Unknown]
  - Asthma [Unknown]
  - Hypertension [Unknown]
  - Crepitations [Unknown]
  - Mucous membrane disorder [Unknown]
